FAERS Safety Report 17962901 (Version 2)
Quarter: 2020Q3

REPORT INFORMATION
  Report Type: Report from Study
  Country: MX (occurrence: MX)
  Receive Date: 20200630
  Receipt Date: 20200705
  Transmission Date: 20201103
  Serious: Yes (Death, Other)
  Sender: FDA-Public Use
  Company Number: MX-UCBSA-2020025046

PATIENT
  Age: 81 Year
  Sex: Female

DRUGS (2)
  1. ROTIGOTINE [Suspect]
     Active Substance: ROTIGOTINE
     Indication: PARKINSON^S DISEASE
     Dosage: 2 MILLIGRAM, ONCE DAILY (QD)
     Route: 062
     Dates: start: 2018, end: 201808
  2. ROTIGOTINE [Suspect]
     Active Substance: ROTIGOTINE
     Dosage: UNK DOSE (PHYSICIAN KEPT CHANGING DOSES) THROUGHOUT 2018
     Route: 062
     Dates: start: 2018, end: 2018

REACTIONS (3)
  - Drug ineffective [Unknown]
  - Asphyxia [Fatal]
  - Parkinson^s disease [Unknown]

NARRATIVE: CASE EVENT DATE: 201804
